FAERS Safety Report 8556520-1 (Version None)
Quarter: 2012Q2

REPORT INFORMATION
  Report Type: 
  Country: None (occurrence: None)
  Receive Date: 20120418
  Receipt Date: 20101029
  Transmission Date: 20120825
  Serious: Yes (Other)
  Sender: FDA-Public Use
  Company Number: PHHY2010US69731

PATIENT
  Age: 65 Year
  Sex: Female

DRUGS (6)
  1. COZAAR [Suspect]
  2. LASIX [Concomitant]
  3. DIOVAN [Suspect]
     Indication: HYPERTENSION
     Dosage: 160 MG
     Dates: start: 20101014, end: 20101015
  4. CHLORPROPAMIDE [Concomitant]
  5. COLCHICINE [Concomitant]
  6. MECLIZINE [Concomitant]

REACTIONS (7)
  - COUGH [None]
  - HYPERTENSION [None]
  - LIP SWELLING [None]
  - WRONG TECHNIQUE IN DRUG USAGE PROCESS [None]
  - ABDOMINAL PAIN UPPER [None]
  - HYPOAESTHESIA ORAL [None]
  - DIARRHOEA [None]
